FAERS Safety Report 5279848-X (Version None)
Quarter: 2007Q1

REPORT INFORMATION
  Report Type: 
  Country: None (occurrence: None)
  Receive Date: 20070326
  Receipt Date: 20070326
  Transmission Date: 20070707
  Serious: Yes (Other)
  Sender: FDA-Public Use
  Company Number: None

PATIENT
  Age: 40 Year
  Sex: Female
  Weight: 78.0187 kg

DRUGS (2)
  1. ORTHO TRI-CYCLEN [Suspect]
     Indication: CONTRACEPTION
  2. ORTHO TRI-CYCLEN LO [Suspect]
     Indication: CONTRACEPTION

REACTIONS (2)
  - HEADACHE [None]
  - METRORRHAGIA [None]
